FAERS Safety Report 7948535-9 (Version None)
Quarter: 2011Q4

REPORT INFORMATION
  Report Type: 
  Country: None (occurrence: None)
  Receive Date: 20111125
  Receipt Date: 20111115
  Transmission Date: 20120403
  Serious: Yes (Hospitalization)
  Sender: FDA-Public Use
  Company Number: USA/USA/11/0021980

PATIENT
  Age: 67 Year
  Sex: Female
  Weight: 74.8435 kg

DRUGS (11)
  1. VERAPAMIL [Suspect]
     Indication: PRODUCT USED FOR UNKNOWN INDICATION
     Dates: end: 20111112
  2. PLAVIX [Concomitant]
  3. LANSOPRAZOLE [Concomitant]
  4. CRESTOR [Concomitant]
  5. VITAMIN B12 [Concomitant]
  6. VITAMIN D [Concomitant]
  7. METFORMIN HCL [Concomitant]
  8. MICARDIS [Concomitant]
  9. AMLODIPINE BESYLATE [Suspect]
     Indication: HYPERTENSION
     Dosage: 5/10 MG DAILY, ORAL
     Route: 048
     Dates: end: 20111112
  10. CALCIUM (CALCIUIM) [Concomitant]
  11. BONIVA [Concomitant]

REACTIONS (2)
  - LOSS OF CONSCIOUSNESS [None]
  - CARDIAC ARREST [None]
